FAERS Safety Report 4500719-8 (Version None)
Quarter: 2004Q4

REPORT INFORMATION
  Report Type: 
  Country: None (occurrence: None)
  Receive Date: 20041109
  Receipt Date: 20041025
  Transmission Date: 20050328
  Serious: Yes (Other)
  Sender: FDA-Public Use
  Company Number: USA041082237

PATIENT
  Age: 71 Year
  Sex: Female

DRUGS (1)
  1. FORTEO [Suspect]

REACTIONS (4)
  - FALL [None]
  - FEMUR FRACTURE [None]
  - FOOT FRACTURE [None]
  - IMPAIRED HEALING [None]
